FAERS Safety Report 10129906 (Version 1)
Quarter: 2014Q2

REPORT INFORMATION
  Report Type: Spontaneous
  Country: TN (occurrence: None)
  Receive Date: 20140424
  Receipt Date: 20140424
  Transmission Date: 20141212
  Serious: Yes (Death, Other)
  Sender: FDA-Public Use
  Company Number: IMP_07565_2014

PATIENT
  Age: 34 Year
  Sex: Male

DRUGS (2)
  1. OMEPRAZOLE (OMEPRAZOLE) [Suspect]
     Indication: PRODUCT USED FOR UNKNOWN INDICATION
     Dosage: (DF)
     Dates: start: 20130310, end: 20130410
  2. AKURIT-4 [Concomitant]

REACTIONS (8)
  - Pancreatitis acute [None]
  - Cell death [None]
  - Abdominal pain upper [None]
  - Hypocalcaemia [None]
  - Aspartate aminotransferase increased [None]
  - Alanine aminotransferase increased [None]
  - Neurological decompensation [None]
  - Confusional state [None]
